FAERS Safety Report 21514897 (Version 1)
Quarter: 2022Q4

REPORT INFORMATION
  Report Type: Spontaneous
  Country: US (occurrence: None)
  Receive Date: 20221027
  Receipt Date: 20221027
  Transmission Date: 20230113
  Serious: Yes (Hospitalization)
  Sender: FDA-Public Use
  Company Number: None

PATIENT
  Age: 81 Year
  Sex: Female
  Weight: 61.23 kg

DRUGS (16)
  1. IBRANCE [Suspect]
     Active Substance: PALBOCICLIB
     Indication: Breast cancer female
     Dosage: OTHER FREQUENCY : 21D OF 28DAYS;?
     Route: 048
  2. AMLODIPINE [Concomitant]
     Active Substance: AMLODIPINE BESYLATE
  3. ASPIRIN [Concomitant]
     Active Substance: ASPIRIN
  4. CLONIDINE [Concomitant]
     Active Substance: CLONIDINE
  5. DONEPEZIL [Concomitant]
     Active Substance: DONEPEZIL
  6. EXEMESTANE [Concomitant]
     Active Substance: EXEMESTANE
  7. FENOFIBRATE [Concomitant]
     Active Substance: FENOFIBRATE
  8. FERROUS SULFATE [Concomitant]
     Active Substance: FERROUS SULFATE
  9. IBANDRONATE SODIUM [Concomitant]
     Active Substance: IBANDRONATE SODIUM
  10. LETROZOLE [Concomitant]
     Active Substance: LETROZOLE
  11. LOVASTATIN [Concomitant]
     Active Substance: LOVASTATIN
  12. METFORMIN [Concomitant]
     Active Substance: METFORMIN HYDROCHLORIDE
  13. OMEPRAZOLE [Concomitant]
     Active Substance: OMEPRAZOLE
  14. RANITIDINE [Concomitant]
     Active Substance: RANITIDINE
  15. SULFAMETHOXAZOLE\TRIMETHOPRIM [Concomitant]
     Active Substance: SULFAMETHOXAZOLE\TRIMETHOPRIM
  16. TEMZAEPAM [Concomitant]

REACTIONS (1)
  - Hospitalisation [None]
